FAERS Safety Report 9507713 (Version 1)
Quarter: 2013Q1

REPORT INFORMATION
  Report Type: Spontaneous
  Country: US (occurrence: None)
  Receive Date: 20130305
  Receipt Date: 20130305
  Transmission Date: 20140127
  Serious: Yes (Other)
  Sender: FDA-Public Use
  Company Number: 163-21880-11110895

PATIENT
  Age: 95 Year
  Sex: Female
  Weight: 46.27 kg

DRUGS (12)
  1. REVLIMID [Suspect]
     Indication: MYELODYSPLASTIC SYNDROME
     Dosage: 10 MG, QD X 21 D, PO
     Route: 048
     Dates: start: 201109, end: 20111108
  2. NIFEDIPINE XL (NIFEDIPINE) (UNKNOWN) [Concomitant]
  3. LEVOTHYROXINE (LEVOTHYROXINE) (UNKNOWN) [Concomitant]
  4. METOPROLOL (METOPROLOL) (UNKNOWN) [Concomitant]
  5. POTASSIUM CHLORIDE (POTASSIUM CHLORIDE) (UNKNOWN) [Concomitant]
  6. FUROSEMIDE (FUROSEMIDE) (UNKNOWN) [Concomitant]
  7. SIMVASTATIN [Concomitant]
  8. TERAZOSIN (TERAZOSIN) (UNKNOWN) [Concomitant]
  9. CLONIDINE (CLONIDINE) (UNKNOWN) [Concomitant]
  10. VITAMIN B-12 (CYANOCOBALAMIN) (UNKNOWN) [Concomitant]
  11. ASA (ACETYLSALICYLIC ACID) (UNKNOWN) [Concomitant]
  12. BLOOD (BLOOD AND RELATED PRODUCTS) (UNKNOWN) [Concomitant]

REACTIONS (3)
  - White blood cell count decreased [None]
  - Haemoglobin decreased [None]
  - Platelet count decreased [None]
